FAERS Safety Report 5392361-4 (Version None)
Quarter: 2007Q3

REPORT INFORMATION
  Report Type: 
  Country: None (occurrence: None)
  Receive Date: 20070720
  Receipt Date: 20070716
  Transmission Date: 20080115
  Serious: Yes (Death)
  Sender: FDA-Public Use
  Company Number: A0651619A

PATIENT
  Age: 34 Year
  Sex: Male

DRUGS (3)
  1. LAMICTAL [Suspect]
     Indication: BIPOLAR II DISORDER
     Dosage: 200MG TWICE PER DAY
     Route: 048
     Dates: start: 20060824
  2. EFFEXOR XR [Concomitant]
     Dosage: 225MG PER DAY
     Dates: start: 20061001
  3. UNSPECIFIED MEDICATION [Concomitant]
     Dosage: 60MG TWICE PER DAY
     Dates: start: 20061001

REACTIONS (2)
  - ALCOHOL USE [None]
  - COMPLETED SUICIDE [None]
